FAERS Safety Report 6137039-4 (Version None)
Quarter: 2009Q1

REPORT INFORMATION
  Report Type: 
  Country: None (occurrence: None)
  Receive Date: 20090326
  Receipt Date: 20090318
  Transmission Date: 20090719
  Serious: Yes (Other)
  Sender: FDA-Public Use
  Company Number: CHPA2009US07251

PATIENT
  Age: 15 Year
  Sex: Male
  Weight: 99.8 kg

DRUGS (1)
  1. EX-LAX REG STR CHOCOLATED LAX PCS SEN (NCH)(SENNA GLYCOSIDES (CA SALTS [Suspect]
     Indication: INCORRECT DOSE ADMINISTERED
     Dosage: 360 ONCE SINLGE, ORAL
     Route: 048
     Dates: start: 20090318, end: 20090318

REACTIONS (3)
  - DEHYDRATION [None]
  - FREQUENT BOWEL MOVEMENTS [None]
  - OVERDOSE [None]
